FAERS Safety Report 8304218-7 (Version None)
Quarter: 2012Q2

REPORT INFORMATION
  Report Type: 
  Country: None (occurrence: None)
  Receive Date: 20120423
  Receipt Date: 20120413
  Transmission Date: 20120825
  Serious: Yes (Hospitalization)
  Sender: FDA-Public Use
  Company Number: CH-UCBSA-055352

PATIENT
  Age: 45 Year
  Sex: Female

DRUGS (2)
  1. VIMPAT [Suspect]
     Indication: EPILEPSY
     Route: 048
     Dates: start: 20110101, end: 20110901
  2. KEPPRA [Concomitant]
     Indication: EPILEPSY
     Route: 048

REACTIONS (5)
  - SKULL FRACTURE [None]
  - HYPOACUSIS [None]
  - CENTRAL NERVOUS SYSTEM LESION [None]
  - CARDIAC ARREST [None]
  - ANOSMIA [None]
